FAERS Safety Report 9754877 (Version 1)
Quarter: 2013Q4

REPORT INFORMATION
  Report Type: Spontaneous
  Country: US (occurrence: US)
  Receive Date: 20131213
  Receipt Date: 20131213
  Transmission Date: 20140711
  Serious: No
  Sender: FDA-Public Use
  Company Number: US-GLAXOSMITHKLINE-A1007806A

PATIENT
  Age: 44 Year
  Sex: Male

DRUGS (3)
  1. NICODERM CQ CLEAR 21MG [Suspect]
     Indication: TOBACCO ABUSE
     Dates: start: 20130107, end: 20130109
  2. NICORETTE CINNAMON SURGE OTC 4MG [Suspect]
     Indication: TOBACCO ABUSE
     Dates: start: 20130107, end: 20130108
  3. OXYCODONE [Concomitant]

REACTIONS (4)
  - Hyperhidrosis [Not Recovered/Not Resolved]
  - Hot flush [Not Recovered/Not Resolved]
  - Drug ineffective [Unknown]
  - Drug administration error [Unknown]
